FAERS Safety Report 9337830 (Version 1)
Quarter: 2013Q2

REPORT INFORMATION
  Report Type: Spontaneous
  Country: US (occurrence: US)
  Receive Date: 20130607
  Receipt Date: 20130607
  Transmission Date: 20140414
  Serious: Yes (Death, Life-Threatening, Other)
  Sender: FDA-Public Use
  Company Number: US-B.I. PHARMACEUTICALS,INC./RIDGEFIELD-2013-RO-00878RO

PATIENT
  Age: 1 Day
  Sex: Male
  Weight: 1 kg

DRUGS (4)
  1. METHADONE [Suspect]
     Indication: FOETAL EXPOSURE DURING PREGNANCY
     Route: 064
  2. CATAPRES [Suspect]
     Indication: FOETAL EXPOSURE DURING PREGNANCY
     Route: 064
  3. CLONAZEPAM [Suspect]
     Indication: FOETAL EXPOSURE DURING PREGNANCY
     Route: 064
  4. IRON [Suspect]
     Indication: FOETAL EXPOSURE DURING PREGNANCY
     Route: 064

REACTIONS (14)
  - Multi-organ failure [Fatal]
  - Herpes simplex [Unknown]
  - Viral sepsis [Unknown]
  - Shock [Unknown]
  - Metabolic acidosis [Unknown]
  - Renal failure acute [Unknown]
  - Respiratory failure [Unknown]
  - Neonatal respiratory distress syndrome [Unknown]
  - Drug withdrawal syndrome neonatal [Unknown]
  - Pneumonia viral [Unknown]
  - Cerebral haemorrhage neonatal [Unknown]
  - Patent ductus arteriosus [Unknown]
  - Low birth weight baby [Unknown]
  - Premature baby [Unknown]
